FAERS Safety Report 9892479 (Version 4)
Quarter: 2014Q2

REPORT INFORMATION
  Report Type: Spontaneous
  Country: US (occurrence: US)
  Receive Date: 20140212
  Receipt Date: 20140519
  Transmission Date: 20141212
  Serious: No
  Sender: FDA-Public Use
  Company Number: US-GILEAD-2014-0094260

PATIENT
  Sex: Female

DRUGS (2)
  1. LETAIRIS [Suspect]
     Indication: PULMONARY ARTERIAL HYPERTENSION
     Dosage: 5 MG, UNK
     Route: 065
     Dates: start: 20140106
  2. LETAIRIS [Suspect]
     Dosage: 2.5 UNK, UNK

REACTIONS (4)
  - Agitation [Unknown]
  - Swelling [Unknown]
  - Fluid retention [Unknown]
  - Fatigue [Unknown]
